FAERS Safety Report 8854794 (Version 1)
Quarter: 2012Q4

REPORT INFORMATION
  Report Type: 
  Country: SG (occurrence: SG)
  Receive Date: 20121023
  Receipt Date: 20121023
  Transmission Date: 20130627
  Serious: Yes (Hospitalization)
  Sender: FDA-Public Use
  Company Number: SG-MYLANLABS-2012S1021107

PATIENT
  Age: 89 Year
  Sex: Female

DRUGS (3)
  1. ALENDRONIC ACID [Suspect]
     Indication: OSTEOPOROSIS
     Route: 065
  2. TERIPARATIDE [Concomitant]
     Route: 065
  3. VITAMIN D [Concomitant]
     Route: 065

REACTIONS (3)
  - Bone disorder [Recovering/Resolving]
  - Pathological fracture [Recovering/Resolving]
  - Fracture nonunion [Not Recovered/Not Resolved]
